FAERS Safety Report 5004263-3 (Version None)
Quarter: 2006Q2

REPORT INFORMATION
  Report Type: 
  Country: None (occurrence: None)
  Receive Date: 20060517
  Receipt Date: 20051004
  Transmission Date: 20061013
  Serious: Yes (Hospitalization)
  Sender: FDA-Public Use
  Company Number: US-MERCK-0510USA03941

PATIENT
  Age: 62 Year
  Sex: Male
  Weight: 90 kg

DRUGS (6)
  1. VIOXX [Suspect]
     Indication: RHEUMATOID ARTHRITIS
     Route: 048
     Dates: end: 20011207
  2. VIOXX [Suspect]
     Route: 048
  3. VIOXX [Suspect]
     Indication: BACK PAIN
     Route: 048
     Dates: end: 20011207
  4. VIOXX [Suspect]
     Route: 048
  5. CLARITIN [Concomitant]
     Route: 048
  6. TARKA [Concomitant]
     Route: 048

REACTIONS (23)
  - ANGINA UNSTABLE [None]
  - ANXIETY [None]
  - ATRIAL FIBRILLATION [None]
  - CORONARY ARTERY DISEASE [None]
  - CORONARY ARTERY STENOSIS [None]
  - DIZZINESS [None]
  - ECZEMA [None]
  - ELECTROCARDIOGRAM T WAVE ABNORMAL [None]
  - EMOTIONAL DISTRESS [None]
  - GASTROOESOPHAGEAL REFLUX DISEASE [None]
  - HEADACHE [None]
  - HYPERLIPIDAEMIA [None]
  - MYOCARDIAL INFARCTION [None]
  - NON-CARDIAC CHEST PAIN [None]
  - OEDEMA [None]
  - OESOPHAGEAL SPASM [None]
  - PAIN [None]
  - PALPITATIONS [None]
  - PLEURAL EFFUSION [None]
  - POLYTRAUMATISM [None]
  - SEXUAL DYSFUNCTION [None]
  - SINUSITIS [None]
  - SUPRAVENTRICULAR EXTRASYSTOLES [None]
